FAERS Safety Report 11875834 (Version 1)
Quarter: 2015Q4

REPORT INFORMATION
  Report Type: Spontaneous
  Country: US (occurrence: US)
  Receive Date: 20151229
  Receipt Date: 20151229
  Transmission Date: 20160305
  Serious: No
  Sender: FDA-Public Use
  Company Number: US-VERTEX PHARMACEUTICALS-2015-005941

PATIENT
  Age: 19 Year
  Sex: Male

DRUGS (1)
  1. ORKAMBI [Suspect]
     Active Substance: IVACAFTOR\LUMACAFTOR
     Indication: CYSTIC FIBROSIS
     Dosage: UNK
     Route: 048
     Dates: start: 201511

REACTIONS (4)
  - Nasal congestion [Unknown]
  - Sinus congestion [Unknown]
  - Nasopharyngitis [Unknown]
  - Productive cough [Unknown]

NARRATIVE: CASE EVENT DATE: 201511
